FAERS Safety Report 17146860 (Version 1)
Quarter: 2019Q4

REPORT INFORMATION
  Report Type: Spontaneous
  Country: AU (occurrence: AU)
  Receive Date: 20191212
  Receipt Date: 20191212
  Transmission Date: 20200122
  Serious: Yes (Other)
  Sender: FDA-Public Use
  Company Number: NVSC2019AU063927

PATIENT
  Age: 50 Year
  Sex: Male

DRUGS (9)
  1. GILENYA [Suspect]
     Active Substance: FINGOLIMOD HYDROCHLORIDE
     Indication: PRODUCT USED FOR UNKNOWN INDICATION
     Dosage: UNK
     Route: 065
  2. SYMMETREL [Suspect]
     Active Substance: AMANTADINE HYDROCHLORIDE
     Indication: PRODUCT USED FOR UNKNOWN INDICATION
     Dosage: UNK
     Route: 065
  3. ERGOCALCIFEROL. [Suspect]
     Active Substance: ERGOCALCIFEROL
     Indication: PRODUCT USED FOR UNKNOWN INDICATION
     Route: 065
  4. DIAZEPAM. [Suspect]
     Active Substance: DIAZEPAM
     Indication: PRODUCT USED FOR UNKNOWN INDICATION
     Route: 065
  5. PANAMAX [Suspect]
     Active Substance: ACETAMINOPHEN
     Indication: PRODUCT USED FOR UNKNOWN INDICATION
     Route: 065
  6. VALPAM 2MG [Suspect]
     Active Substance: DIAZEPAM
     Indication: PRODUCT USED FOR UNKNOWN INDICATION
     Dosage: UNK
     Route: 065
  7. CALTRATE [Suspect]
     Active Substance: CALCIUM CARBONATE
     Indication: PRODUCT USED FOR UNKNOWN INDICATION
     Dosage: UNK
     Route: 065
  8. CIPRAMIL (CITALOPRAM HYDROBROMIDE) [Suspect]
     Active Substance: CITALOPRAM HYDROBROMIDE
     Indication: PRODUCT USED FOR UNKNOWN INDICATION
     Dosage: UNK
     Route: 065
  9. COLECALCIFEROL [Suspect]
     Active Substance: CHOLECALCIFEROL
     Indication: PRODUCT USED FOR UNKNOWN INDICATION
     Route: 065

REACTIONS (27)
  - Paraesthesia [Unknown]
  - Lymphocyte count decreased [Unknown]
  - Dehydration [Unknown]
  - Hypoaesthesia [Unknown]
  - Lethargy [Unknown]
  - Muscular weakness [Unknown]
  - Night sweats [Unknown]
  - Sinus bradycardia [Unknown]
  - Vision blurred [Unknown]
  - Gamma-glutamyltransferase increased [Unknown]
  - Asthenia [Unknown]
  - Visual impairment [Unknown]
  - Chills [Unknown]
  - Decreased appetite [Unknown]
  - Arthralgia [Unknown]
  - Fatigue [Unknown]
  - Balance disorder [Unknown]
  - Alanine aminotransferase increased [Unknown]
  - Dysarthria [Unknown]
  - Malaise [Unknown]
  - Nausea [Unknown]
  - Multiple sclerosis relapse [Unknown]
  - Diplopia [Unknown]
  - Hyperhidrosis [Unknown]
  - Urinary incontinence [Unknown]
  - White blood cell count decreased [Unknown]
  - Headache [Unknown]
